FAERS Safety Report 5419767-9 (Version None)
Quarter: 2007Q3

REPORT INFORMATION
  Report Type: 
  Country: None (occurrence: None)
  Receive Date: 20070820
  Receipt Date: 20070328
  Transmission Date: 20080115
  Serious: Yes (Other)
  Sender: FDA-Public Use
  Company Number: GB-TYCO HEALTHCARE/MALLINCKRODT-T200700893

PATIENT
  Age: 60 Year
  Sex: Female

DRUGS (1)
  1. SODIUM IODIDE I 131 [Suspect]
     Indication: ISOTOPE THERAPY TO THYROID
     Dosage: 14 GBQ, UNK

REACTIONS (2)
  - PAROTID GLAND ENLARGEMENT [None]
  - SALIVARY GLAND ADENOMA [None]
